FAERS Safety Report 9759829 (Version 1)
Quarter: 2013Q4

REPORT INFORMATION
  Report Type: Spontaneous
  Country: JP (occurrence: JP)
  Receive Date: 20131216
  Receipt Date: 20131216
  Transmission Date: 20140711
  Serious: Yes (Other)
  Sender: FDA-Public Use
  Company Number: JP-PFIZER INC-2013354031

PATIENT
  Sex: Female

DRUGS (1)
  1. XALATAN [Suspect]
     Indication: NORMAL TENSION GLAUCOMA
     Dosage: 1 DROP (LEFT EYE), 1X/DAY
     Route: 047
     Dates: start: 20120221

REACTIONS (1)
  - Cataract [Unknown]
